FAERS Safety Report 14125082 (Version 1)
Quarter: 2017Q4

REPORT INFORMATION
  Report Type: Report from Study
  Country: AR (occurrence: AR)
  Receive Date: 20171025
  Receipt Date: 20171025
  Transmission Date: 20180321
  Serious: Yes (Other)
  Sender: FDA-Public Use
  Company Number: PHHY2017AR061735

PATIENT
  Age: 79 Year
  Sex: Male

DRUGS (6)
  1. LEVOTHYROXINE. [Concomitant]
     Active Substance: LEVOTHYROXINE
     Indication: PRODUCT USED FOR UNKNOWN INDICATION
     Dosage: UNK
     Route: 065
  2. ENTRESTO [Suspect]
     Active Substance: SACUBITRIL\VALSARTAN
     Dosage: 200 MG (97 SACUBITRIL/103 MG VALSARTAN), QD
     Route: 065
     Dates: start: 20170917
  3. OMEPRAZOLE. [Concomitant]
     Active Substance: OMEPRAZOLE
     Indication: PRODUCT USED FOR UNKNOWN INDICATION
     Dosage: 20 MG, QD
     Route: 065
  4. PREVENT [Concomitant]
     Active Substance: ALCOHOL
     Indication: PRODUCT USED FOR UNKNOWN INDICATION
     Dosage: 50 MG, QD
     Route: 065
  5. ENTRESTO [Suspect]
     Active Substance: SACUBITRIL\VALSARTAN
     Indication: CARDIAC FAILURE CHRONIC
     Dosage: 100 MG (49MG OF SACUBITRIL AND 51MG OF VALSARTAN), QD
     Route: 065
     Dates: start: 201702, end: 20170917
  6. ALDACTONE [Concomitant]
     Active Substance: SPIRONOLACTONE
     Indication: PRODUCT USED FOR UNKNOWN INDICATION
     Dosage: 25 MG, QD
     Route: 065

REACTIONS (11)
  - Pruritus generalised [Not Recovered/Not Resolved]
  - Hyperthyroidism [Unknown]
  - Fluid retention [Not Recovered/Not Resolved]
  - Gastrointestinal disorder [Unknown]
  - Weight decreased [Not Recovered/Not Resolved]
  - Abdominal pain [Recovered/Resolved]
  - Hypotension [Not Recovered/Not Resolved]
  - Anaemia [Not Recovered/Not Resolved]
  - Hepatitis [Unknown]
  - Gastrointestinal pain [Recovered/Resolved]
  - Inappropriate schedule of drug administration [Unknown]

NARRATIVE: CASE EVENT DATE: 201703
